FAERS Safety Report 10016698 (Version 3)
Quarter: 2014Q2

REPORT INFORMATION
  Report Type: Report from Study
  Country: IN (occurrence: IN)
  Receive Date: 20140318
  Receipt Date: 20140402
  Transmission Date: 20141212
  Serious: Yes (Death)
  Sender: FDA-Public Use
  Company Number: IN-ROCHE-1355424

PATIENT
  Age: 67 Year
  Sex: Male

DRUGS (2)
  1. EXXURA [Suspect]
     Indication: HEPATITIS C
     Route: 058
     Dates: start: 20131226, end: 20140226
  2. COPEGUS [Suspect]
     Indication: HEPATITIS C
     Dosage: 4 TABLETS ONCE DAILY
     Route: 048
     Dates: start: 20131226, end: 20140226

REACTIONS (3)
  - Asthenia [Fatal]
  - Full blood count decreased [Not Recovered/Not Resolved]
  - Stomatitis [Not Recovered/Not Resolved]
